FAERS Safety Report 7436365-6 (Version None)
Quarter: 2011Q2

REPORT INFORMATION
  Report Type: 
  Country: None (occurrence: None)
  Receive Date: 20110426
  Receipt Date: 20110414
  Transmission Date: 20111010
  Serious: Yes (Hospitalization)
  Sender: FDA-Public Use
  Company Number: US-BIOGENIDEC-2011BI001917

PATIENT
  Age: 46 Year
  Sex: Female
  Weight: 126 kg

DRUGS (6)
  1. TYSABRI [Suspect]
     Indication: MULTIPLE SCLEROSIS
     Route: 042
     Dates: start: 20100707, end: 20101122
  2. SPIRONOLACTLONE [Concomitant]
     Indication: BLOOD PRESSURE INCREASED
  3. LISINOPRIL [Concomitant]
     Indication: BLOOD PRESSURE INCREASED
  4. CLONIDINE [Concomitant]
     Indication: BLOOD PRESSURE INCREASED
  5. TYSABRI [Suspect]
     Route: 042
     Dates: start: 20110413, end: 20110413
  6. POTASSIUM [Concomitant]
     Indication: BLOOD PRESSURE INCREASED

REACTIONS (7)
  - CHEST PAIN [None]
  - HEMIPARESIS [None]
  - HEADACHE [None]
  - DIZZINESS [None]
  - HYPERTENSION [None]
  - MUSCLE SPASMS [None]
  - VISUAL IMPAIRMENT [None]
